FAERS Safety Report 5156219-8 (Version None)
Quarter: 2006Q4

REPORT INFORMATION
  Report Type: 
  Country: None (occurrence: None)
  Receive Date: 20061114
  Receipt Date: 20061101
  Transmission Date: 20070319
  Serious: No
  Sender: FDA-Public Use
  Company Number: 06H-163-0311005-00

PATIENT
  Age: 62 Year
  Sex: Female

DRUGS (3)
  1. HEPARIN SODIUM [Suspect]
     Indication: PERIPHERAL ISCHAEMIA
  2. FUROSEMIDE [Concomitant]
  3. DESMOPRESSIN (DESMOPRESSION) [Concomitant]

REACTIONS (4)
  - DIABETES INSIPIDUS [None]
  - HEPARIN-INDUCED THROMBOCYTOPENIA [None]
  - HYPERNATRAEMIA [None]
  - PITUITARY INFARCTION [None]
